FAERS Safety Report 22117152 (Version 1)
Quarter: 2023Q1

REPORT INFORMATION
  Report Type: Spontaneous
  Country: US (occurrence: US)
  Receive Date: 20230320
  Receipt Date: 20230320
  Transmission Date: 20230418
  Serious: No
  Sender: FDA-Public Use
  Company Number: US-TEVA-2023-US-2862767

PATIENT
  Age: 38 Year
  Sex: Female

DRUGS (5)
  1. ARMODAFINIL [Suspect]
     Active Substance: ARMODAFINIL
     Indication: Product used for unknown indication
     Dosage: 150 MILLIGRAM DAILY;
     Route: 065
     Dates: start: 202302
  2. NUVIGIL [Suspect]
     Active Substance: ARMODAFINIL
     Indication: Narcolepsy
     Dosage: 2011 OR 2012
     Route: 065
  3. NUVIGIL [Suspect]
     Active Substance: ARMODAFINIL
     Route: 065
  4. NUVIGIL [Suspect]
     Active Substance: ARMODAFINIL
     Route: 065
  5. TYLENOL [Concomitant]
     Active Substance: ACETAMINOPHEN
     Indication: Product used for unknown indication
     Dosage: OCCASIONAL
     Route: 065

REACTIONS (5)
  - Headache [Unknown]
  - Arthralgia [Unknown]
  - Feeling abnormal [Not Recovered/Not Resolved]
  - Drug ineffective [Unknown]
  - Incorrect dose administered [Unknown]

NARRATIVE: CASE EVENT DATE: 20230224
